FAERS Safety Report 25745402 (Version 1)
Quarter: 2025Q3

REPORT INFORMATION
  Report Type: Spontaneous
  Country: US (occurrence: US)
  Receive Date: 20250901
  Receipt Date: 20250901
  Transmission Date: 20251020
  Serious: No
  Sender: pharmaAND
  Company Number: US-Pharmaand-2024001255

PATIENT
  Sex: Male

DRUGS (1)
  1. PEGASYS [Suspect]
     Active Substance: PEGINTERFERON ALFA-2A
     Indication: Thrombocytosis

REACTIONS (3)
  - Diarrhoea [Not Recovered/Not Resolved]
  - Off label use [Recovered/Resolved]
  - Thrombocytosis [Recovered/Resolved]
